FAERS Safety Report 15946854 (Version 1)
Quarter: 2019Q1

REPORT INFORMATION
  Report Type: Spontaneous
  Country: US (occurrence: US)
  Receive Date: 20190212
  Receipt Date: 20190212
  Transmission Date: 20190417
  Serious: No
  Sender: FDA-Public Use
  Company Number: None

PATIENT
  Age: 53 Year
  Sex: Male
  Weight: 90 kg

DRUGS (4)
  1. LIPITOR [Concomitant]
     Active Substance: ATORVASTATIN CALCIUM
  2. VITAMIN D [Concomitant]
     Active Substance: CHOLECALCIFEROL
  3. ACIPHEX [Concomitant]
     Active Substance: RABEPRAZOLE SODIUM
  4. LUPIN NDC68180-943-11 TESTOSTERONE TOPICAL SOLUTION 30MG/1.5ML [Suspect]
     Active Substance: TESTOSTERONE
     Indication: HYPOGONADISM
     Dosage: ?          QUANTITY:1 PUMP;?
     Route: 061
     Dates: start: 20190205

REACTIONS (2)
  - Drug effect decreased [None]
  - Therapeutic response changed [None]

NARRATIVE: CASE EVENT DATE: 20190209
